FAERS Safety Report 15155083 (Version 1)
Quarter: 2018Q3

REPORT INFORMATION
  Report Type: Spontaneous
  Country: FR (occurrence: FR)
  Receive Date: 20180717
  Receipt Date: 20180717
  Transmission Date: 20181010
  Serious: Yes (Hospitalization)
  Sender: FDA-Public Use
  Company Number: FR-SA-2018SA180236

PATIENT
  Age: 74 Year
  Sex: Female

DRUGS (5)
  1. METRONIDAZOLE. [Suspect]
     Active Substance: METRONIDAZOLE
     Indication: ARTHRITIS BACTERIAL
     Dosage: NON RENSEIGN?E
     Route: 048
     Dates: start: 20180521, end: 20180602
  2. RIFADINE [Suspect]
     Active Substance: RIFAMPIN
     Dosage: NON RENSEIGN?E
     Route: 048
     Dates: start: 20180529, end: 20180612
  3. AXEPIM [Suspect]
     Active Substance: CEFEPIME HYDROCHLORIDE
     Indication: ARTHRITIS BACTERIAL
     Dosage: NON RENSEIGN?E
     Route: 042
     Dates: start: 20180521, end: 20180602
  4. BACTRIM [Suspect]
     Active Substance: SULFAMETHOXAZOLE\TRIMETHOPRIM
     Indication: ARTHRITIS BACTERIAL
     Dosage: NON RENSEIGN?E
     Route: 048
     Dates: start: 20180602, end: 20180612
  5. TARGOCID [Suspect]
     Active Substance: TEICOPLANIN
     Dosage: NON RENSEIGN?E
     Route: 042
     Dates: start: 20180521, end: 20180602

REACTIONS (1)
  - Rash maculo-papular [Recovered/Resolved]

NARRATIVE: CASE EVENT DATE: 20180603
